FAERS Safety Report 15282024 (Version 7)
Quarter: 2019Q1

REPORT INFORMATION
  Report Type: Report from Study
  Country: None (occurrence: US)
  Receive Date: 20180815
  Receipt Date: 20190320
  Transmission Date: 20190417
  Serious: Yes (Other)
  Sender: FDA-Public Use
  Company Number: US-ABBVIE-18K-163-2452160-00

PATIENT
  Age: 76 Year
  Sex: Female
  Weight: 65.83 kg

DRUGS (6)
  1. FOLIC ACID. [Concomitant]
     Active Substance: FOLIC ACID
     Indication: VITAMIN SUPPLEMENTATION
  2. VITAMIN B12 [Concomitant]
     Active Substance: CYANOCOBALAMIN
     Indication: PRODUCT USED FOR UNKNOWN INDICATION
  3. METHOTREXATE. [Concomitant]
     Active Substance: METHOTREXATE
     Indication: RHEUMATOID ARTHRITIS
  4. HUMIRA [Suspect]
     Active Substance: ADALIMUMAB
     Route: 058
  5. HUMIRA [Suspect]
     Active Substance: ADALIMUMAB
     Indication: RHEUMATOID ARTHRITIS
     Route: 058
     Dates: start: 1998, end: 2017
  6. CALCIUM [Concomitant]
     Active Substance: CALCIUM
     Indication: MINERAL SUPPLEMENTATION

REACTIONS (11)
  - Squamous cell carcinoma of skin [Not Recovered/Not Resolved]
  - Pain in extremity [Recovered/Resolved]
  - Intentional product misuse [Not Recovered/Not Resolved]
  - Pain in extremity [Recovered/Resolved]
  - Meniscus injury [Recovered/Resolved]
  - Osteoarthritis [Recovered/Resolved]
  - Macrocytosis [Unknown]
  - Rheumatoid arthritis [Unknown]
  - Rash macular [Unknown]
  - Hyperkeratosis [Unknown]
  - Cataract [Unknown]

NARRATIVE: CASE EVENT DATE: 2015
